FAERS Safety Report 8770484 (Version 5)
Quarter: 2013Q1

REPORT INFORMATION
  Report Type: Report from Study
  Country: JP (occurrence: JP)
  Receive Date: 20120906
  Receipt Date: 20130213
  Transmission Date: 20140127
  Serious: Yes (Hospitalization, Other)
  Sender: FDA-Public Use
  Company Number: JP-009507513-2012SP022459

PATIENT
  Age: 57 Year
  Sex: Male
  Weight: 61 kg

DRUGS (22)
  1. PEGINTRON [Suspect]
     Indication: CHRONIC HEPATITIS C
     Dosage: 1.5MICROGRAM PER KILOGRAM, QW
     Route: 058
     Dates: start: 20120301, end: 20120425
  2. PEGINTRON [Suspect]
     Dosage: 1.2 MICROGRAM PER KILOGRAM, QW
     Route: 058
     Dates: start: 20120426, end: 20120809
  3. REBETOL [Suspect]
     Indication: CHRONIC HEPATITIS C
     Dosage: 600 MG, QD
     Route: 048
     Dates: start: 20120301, end: 20120311
  4. REBETOL [Suspect]
     Dosage: 200 MG, QD
     Route: 048
     Dates: start: 20120312, end: 20120613
  5. REBETOL [Suspect]
     Dosage: 400 MG, QD
     Route: 048
     Dates: start: 20120614, end: 20120620
  6. REBETOL [Suspect]
     Dosage: 600 MG, QD
     Route: 048
     Dates: start: 20120621, end: 20120627
  7. REBETOL [Suspect]
     Dosage: 400 MG, QD
     Route: 048
     Dates: start: 20120628, end: 20120704
  8. REBETOL [Suspect]
     Dosage: 800 MG, QD
     Route: 048
     Dates: start: 20120705, end: 20120815
  9. TELAVIC [Suspect]
     Indication: CHRONIC HEPATITIS C
     Dosage: 2250MG, QD
     Route: 048
     Dates: start: 20120301, end: 20120404
  10. TELAVIC [Suspect]
     Dosage: 1500MG, QD
     Route: 048
     Dates: start: 20120405, end: 20120510
  11. TELAVIC [Suspect]
     Dosage: 1000MG, QD
     Route: 048
     Dates: start: 20120511, end: 20120517
  12. TELAVIC [Suspect]
     Dosage: 1500MG, QD
     Route: 048
     Dates: start: 20120518, end: 20120523
  13. MAGMITT [Concomitant]
     Dosage: 990 MG, QD
     Route: 048
     Dates: start: 20120311, end: 20120627
  14. METGLUCO [Concomitant]
     Indication: DIABETES MELLITUS
     Dosage: TRADE NAME: METGLUCO
     Route: 048
     Dates: start: 20120419, end: 20120530
  15. ACETAMINOPHEN [Concomitant]
     Indication: PROPHYLAXIS
     Dosage: 4.5 G, QD
     Route: 048
     Dates: start: 20120419, end: 20120502
  16. HYPEN [Concomitant]
     Indication: PROPHYLAXIS
     Dosage: 400 MG, QD
     Route: 048
     Dates: start: 20120419, end: 20120425
  17. MOHRUS L [Concomitant]
     Indication: BACK PAIN
     Dosage: FORMULATION: TAP, TRADE NAME: MOHRUS TAPE L
     Route: 061
     Dates: start: 20120419, end: 20120509
  18. NABOAL [Concomitant]
     Indication: BACK PAIN
     Dosage: TRADE NAME: NABOL, FORMULATION: EXT
     Route: 051
     Dates: start: 20120515
  19. TALION (BEPOTASTINE BESYLATE) [Concomitant]
     Indication: ANTIALLERGIC THERAPY
     Dosage: ANTI ALLERGIC DRUG
     Route: 048
     Dates: start: 20120308, end: 20120322
  20. BAYLOTENSIN [Concomitant]
     Indication: HYPERTENSION
     Dosage: 5 MG,QD
     Route: 048
     Dates: start: 20120530
  21. GLACTIV [Concomitant]
     Indication: DIABETES MELLITUS
     Dosage: 50 MG, QD
     Route: 048
     Dates: start: 20120614
  22. CRAVIT [Concomitant]
     Indication: NOCTURIA
     Dosage: 500 MG, QD
     Route: 048
     Dates: start: 20120614, end: 20120620

REACTIONS (4)
  - Loss of consciousness [Recovered/Resolved]
  - Gastric ulcer [Unknown]
  - Erythema multiforme [Recovering/Resolving]
  - Haemoglobin decreased [Not Recovered/Not Resolved]
